FAERS Safety Report 5369049-9 (Version None)
Quarter: 2007Q2

REPORT INFORMATION
  Report Type: 
  Country: None (occurrence: None)
  Receive Date: 20070625
  Receipt Date: 20070108
  Transmission Date: 20071010
  Serious: No
  Sender: FDA-Public Use
  Company Number: US-ASTRAZENECA-2007UW00355

PATIENT
  Age: 72 Year
  Sex: Female
  Weight: 52.2 kg

DRUGS (9)
  1. CRESTOR [Suspect]
     Indication: BLOOD CHOLESTEROL INCREASED
     Route: 048
     Dates: start: 20061201
  2. ZETIA [Concomitant]
  3. METOPROLOL SUCCINATE [Concomitant]
     Route: 048
  4. TOPROL-XL [Concomitant]
     Route: 048
  5. ZOLOFT [Concomitant]
  6. SERAX [Concomitant]
  7. ESTIC [Concomitant]
  8. ASPIRIN [Concomitant]
  9. GLUCOSAMINE [Concomitant]

REACTIONS (2)
  - COUGH [None]
  - PHARYNGOLARYNGEAL PAIN [None]
